FAERS Safety Report 7124617-9 (Version None)
Quarter: 2010Q4

REPORT INFORMATION
  Report Type: 
  Country: None (occurrence: None)
  Receive Date: 20101129
  Receipt Date: 20101120
  Transmission Date: 20110411
  Serious: Yes (Death, Hospitalization, Other)
  Sender: FDA-Public Use
  Company Number: US-CELGENEUS-163-21880-10112520

PATIENT
  Sex: Female

DRUGS (24)
  1. REVLIMID [Suspect]
     Indication: MULTIPLE MYELOMA
     Route: 048
     Dates: start: 20081122, end: 20090303
  2. REVLIMID [Suspect]
     Route: 048
     Dates: start: 20090410, end: 20091030
  3. REVLIMID [Suspect]
     Route: 048
     Dates: start: 20100219, end: 20100416
  4. VELCADE [Concomitant]
     Indication: MULTIPLE MYELOMA
     Route: 065
     Dates: start: 20090410, end: 20091030
  5. VELCADE [Concomitant]
     Route: 065
     Dates: start: 20100219
  6. DECADRON [Concomitant]
     Route: 065
     Dates: start: 20100219
  7. MEGACE [Concomitant]
     Route: 065
  8. FENTANYL [Concomitant]
     Dosage: 1 PATCH
     Route: 062
  9. PREDNISONE [Concomitant]
     Route: 065
  10. NORVASC [Concomitant]
     Route: 065
  11. MIRALAX [Concomitant]
     Route: 065
  12. COMPAZINE [Concomitant]
     Route: 065
  13. ALBUTEROL [Concomitant]
     Route: 065
  14. XANAX [Concomitant]
     Route: 065
  15. CLONIDINE [Concomitant]
     Dosage: 1 PATCH
     Route: 062
  16. CARDURA [Concomitant]
     Route: 065
  17. BYSTOLIC [Concomitant]
     Route: 065
  18. BENICAR HCT [Concomitant]
     Route: 048
  19. MAGNESIUM OXIDE [Concomitant]
     Route: 065
  20. DUONEB [Concomitant]
     Route: 065
  21. ATROVENT [Concomitant]
     Route: 065
  22. LEXAPRO [Concomitant]
     Route: 065
  23. OMEPRAZOLE [Concomitant]
     Route: 065
  24. TORSEMIDE [Concomitant]
     Route: 065

REACTIONS (8)
  - ANAEMIA [None]
  - CHRONIC OBSTRUCTIVE PULMONARY DISEASE [None]
  - DEATH [None]
  - DEHYDRATION [None]
  - DIARRHOEA [None]
  - FAILURE TO THRIVE [None]
  - RENAL FAILURE ACUTE [None]
  - URINARY TRACT INFECTION [None]
